FAERS Safety Report 4650851-3 (Version None)
Quarter: 2005Q2

REPORT INFORMATION
  Report Type: 
  Country: None (occurrence: None)
  Receive Date: 20050503
  Receipt Date: 20050401
  Transmission Date: 20051028
  Serious: Yes (Hospitalization)
  Sender: FDA-Public Use
  Company Number: CA-SANOFI-SYNTHELABO-A01200501945

PATIENT
  Age: 57 Year
  Sex: Female

DRUGS (8)
  1. PLAVIX [Interacting]
     Indication: STENT PLACEMENT
     Route: 048
  2. LIPITOR [Interacting]
     Indication: DRUG USE FOR UNKNOWN INDICATION
     Route: 048
  3. CYCLOSPORINE [Interacting]
     Indication: HEART TRANSPLANT
     Route: 048
  4. APO-ALLOPURINOL [Suspect]
     Indication: DRUG USE FOR UNKNOWN INDICATION
     Dosage: UNK
     Route: 065
  5. IMURAN [Concomitant]
     Indication: DRUG USE FOR UNKNOWN INDICATION
     Dosage: UNK
     Route: 065
  6. PREDNISONE TAB [Concomitant]
     Indication: DRUG USE FOR UNKNOWN INDICATION
     Dosage: UNK
     Route: 065
  7. LISINOPRIL [Concomitant]
     Indication: DRUG USE FOR UNKNOWN INDICATION
     Dosage: UNK
     Route: 065
  8. FUROSEMIDE [Concomitant]
     Indication: DRUG USE FOR UNKNOWN INDICATION
     Dosage: UNK
     Route: 065

REACTIONS (4)
  - CORONARY ARTERIAL STENT INSERTION [None]
  - DRUG INTERACTION [None]
  - MYOCARDIAL INFARCTION [None]
  - RHABDOMYOLYSIS [None]
